FAERS Safety Report 5528634-1 (Version None)
Quarter: 2007Q4

REPORT INFORMATION
  Report Type: 
  Country: None (occurrence: None)
  Receive Date: 20071116
  Receipt Date: 20070109
  Transmission Date: 20080405
  Serious: Yes (Hospitalization)
  Sender: FDA-Public Use
  Company Number: AMAN20070001

PATIENT
  Age: 77 Year
  Sex: Female

DRUGS (3)
  1. AMANTADINE HYDROCHLORIDE [Suspect]
     Indication: PARKINSON'S DISEASE
     Dosage: PER ORAL
     Route: 048
     Dates: start: 20060301, end: 20060917
  2. SINEMET [Suspect]
     Indication: PARKINSON'S DISEASE
     Dosage: 125 MG, 4 IN 1 D, PER ORAL
     Route: 048
     Dates: end: 20060927
  3. NAPROXEN [Concomitant]

REACTIONS (1)
  - HALLUCINATIONS, MIXED [None]
